FAERS Safety Report 16801270 (Version 3)
Quarter: 2019Q4

REPORT INFORMATION
  Report Type: Report from Study
  Country: US (occurrence: US)
  Receive Date: 20190912
  Receipt Date: 20191015
  Transmission Date: 20200122
  Serious: Yes (Hospitalization, Other)
  Sender: FDA-Public Use
  Company Number: PHEH2019US037599

PATIENT
  Age: 36 Year
  Sex: Male
  Weight: 77.1 kg

DRUGS (1)
  1. GILENYA [Suspect]
     Active Substance: FINGOLIMOD HYDROCHLORIDE
     Indication: MULTIPLE SCLEROSIS
     Dosage: 0.5 MG, QD
     Route: 048
     Dates: start: 20190910

REACTIONS (6)
  - Hyperaesthesia [Unknown]
  - Asthenia [Unknown]
  - Sinus bradycardia [Unknown]
  - Multiple sclerosis relapse [Unknown]
  - Disorientation [Unknown]
  - Neoplasm [Unknown]

NARRATIVE: CASE EVENT DATE: 20190910
